FAERS Safety Report 6155791-9 (Version None)
Quarter: 2009Q2

REPORT INFORMATION
  Report Type: 
  Country: None (occurrence: None)
  Receive Date: 20090415
  Receipt Date: 20090410
  Transmission Date: 20091009
  Serious: Yes (Other)
  Sender: FDA-Public Use
  Company Number: PHEH2009US03598

PATIENT
  Sex: Female

DRUGS (7)
  1. RECLAST [Suspect]
     Dosage: UNK
     Dates: start: 20080119
  2. RECLAST [Suspect]
     Dosage: UNK
     Dates: start: 20090118
  3. MORPHINE [Concomitant]
  4. VITAMIN D [Concomitant]
  5. CALCIUM CITRATE W/VITAMIN D NOS [Concomitant]
  6. STOOL SOFTENER [Concomitant]
  7. PREVACID [Concomitant]

REACTIONS (2)
  - DENTAL CARIES [None]
  - TOOTH EXTRACTION [None]
